FAERS Safety Report 15384251 (Version 3)
Quarter: 2018Q4

REPORT INFORMATION
  Report Type: Spontaneous
  Country: JP (occurrence: JP)
  Receive Date: 20180914
  Receipt Date: 20181115
  Transmission Date: 20190204
  Serious: Yes (Other)
  Sender: FDA-Public Use
  Company Number: JP-BRISTOL-MYERS SQUIBB COMPANY-BMS-2018-084780

PATIENT
  Age: 58 Year
  Sex: Female

DRUGS (1)
  1. ELIQUIS [Suspect]
     Active Substance: APIXABAN
     Indication: CEREBRAL INFARCTION
     Dosage: 5 MG, BID
     Route: 048

REACTIONS (2)
  - Product use in unapproved indication [Unknown]
  - Endocarditis noninfective [Unknown]
